FAERS Safety Report 12261141 (Version 1)
Quarter: 2016Q2

REPORT INFORMATION
  Report Type: Spontaneous
  Country: US (occurrence: None)
  Receive Date: 20160412
  Receipt Date: 20160412
  Transmission Date: 20160815
  Serious: Yes (Hospitalization)
  Sender: FDA-Public Use
  Company Number: None

PATIENT
  Age: 57 Year
  Sex: Female

DRUGS (15)
  1. PROLIA [Suspect]
     Active Substance: DENOSUMAB
     Indication: OSTEOPOROSIS
     Dosage: EVERY 6 MONTHS
     Route: 058
     Dates: start: 20160323
  2. HYDROMORPHONE [Concomitant]
     Active Substance: HYDROMORPHONE
  3. TRAVATAN [Concomitant]
     Active Substance: TRAVOPROST
  4. DULOXETINE. [Concomitant]
     Active Substance: DULOXETINE
  5. LORAZEPAM. [Concomitant]
     Active Substance: LORAZEPAM
  6. DEPEN [Concomitant]
     Active Substance: PENICILLAMINE
  7. GABAPENTIN. [Concomitant]
     Active Substance: GABAPENTIN
  8. OXCARBAZINE [Concomitant]
     Active Substance: OXCARBAZEPINE
  9. IPRATROPIUM/ALBUTEROL [Concomitant]
     Active Substance: ALBUTEROL\IPRATROPIUM
  10. PROCHLORPERAZINE. [Concomitant]
     Active Substance: PROCHLORPERAZINE
  11. KCL [Concomitant]
     Active Substance: POTASSIUM CHLORIDE
  12. TAMSULOSIN [Concomitant]
     Active Substance: TAMSULOSIN
  13. VITAMIN D3 [Concomitant]
     Active Substance: CHOLECALCIFEROL
  14. AUGMENTIN [Concomitant]
     Active Substance: AMOXICILLIN\CLAVULANATE POTASSIUM
  15. CYANOCOBALAMIN. [Concomitant]
     Active Substance: CYANOCOBALAMIN

REACTIONS (4)
  - Respiratory disorder [None]
  - Loss of consciousness [None]
  - Disease complication [None]
  - Pneumonia [None]

NARRATIVE: CASE EVENT DATE: 20160406
